FAERS Safety Report 13226392 (Version 1)
Quarter: 2017Q1

REPORT INFORMATION
  Report Type: Spontaneous
  Country: US (occurrence: US)
  Receive Date: 20170213
  Receipt Date: 20170213
  Transmission Date: 20170428
  Serious: Yes (Other)
  Sender: FDA-Public Use
  Company Number: None

PATIENT
  Age: 52 Year
  Sex: Male
  Weight: 68.1 kg

DRUGS (4)
  1. METOPROLOL TARTRATE. [Concomitant]
     Active Substance: METOPROLOL TARTRATE
  2. HEPARIN [Suspect]
     Active Substance: HEPARIN SODIUM
     Indication: LIMB OPERATION
  3. CHEWABLE ASPRIN [Concomitant]
  4. HYDROCODONE [Concomitant]
     Active Substance: HYDROCODONE

REACTIONS (1)
  - Thrombosis [None]

NARRATIVE: CASE EVENT DATE: 20160423
